FAERS Safety Report 9018474 (Version 1)
Quarter: 2013Q1

REPORT INFORMATION
  Report Type: Spontaneous
  Country: US (occurrence: None)
  Receive Date: 20130111
  Receipt Date: 20130111
  Transmission Date: 20140127
  Serious: Yes (Life-Threatening, Hospitalization)
  Sender: FDA-Public Use
  Company Number: None

PATIENT
  Age: 35 Year
  Sex: Female

DRUGS (1)
  1. LO LOESTRIN FE [Suspect]
     Indication: MENSTRUATION IRREGULAR
     Dosage: ONE PILL EVERY DAY PO
     Route: 048
     Dates: start: 20120316, end: 20120903

REACTIONS (8)
  - Migraine [None]
  - Dizziness [None]
  - Malaise [None]
  - Vomiting [None]
  - Hyperaesthesia [None]
  - Photosensitivity reaction [None]
  - Nausea [None]
  - Thrombosis [None]
